FAERS Safety Report 5807605-1 (Version None)
Quarter: 2008Q3

REPORT INFORMATION
  Report Type: 
  Country: None (occurrence: None)
  Receive Date: 20080711
  Receipt Date: 20080702
  Transmission Date: 20090109
  Serious: Yes (Hospitalization, Disabling)
  Sender: FDA-Public Use
  Company Number: IN-SANOFI-SYNTHELABO-A01200807573

PATIENT
  Age: 42 Year
  Sex: Male

DRUGS (2)
  1. PENTAZOCINE LACTATE [Suspect]
     Indication: ABDOMINAL PAIN
     Dosage: 60 MG
     Route: 030
  2. PHENERGAN HCL [Suspect]
     Indication: ABDOMINAL PAIN
     Dosage: UNK
     Route: 030

REACTIONS (4)
  - ACTIVITIES OF DAILY LIVING IMPAIRED [None]
  - DRUG ABUSE [None]
  - FIBROMYALGIA [None]
  - MOBILITY DECREASED [None]
